FAERS Safety Report 13369075 (Version 1)
Quarter: 2017Q1

REPORT INFORMATION
  Report Type: Spontaneous
  Country: JP (occurrence: JP)
  Receive Date: 20170324
  Receipt Date: 20170324
  Transmission Date: 20170429
  Serious: Yes (Other)
  Sender: FDA-Public Use
  Company Number: JP-GILEAD-2017-0260099

PATIENT
  Age: 53 Year
  Sex: Male

DRUGS (2)
  1. TENOFOVIR DISOPROXIL FUMARATE. [Suspect]
     Active Substance: TENOFOVIR DISOPROXIL FUMARATE
     Indication: CHRONIC HEPATITIS B
     Dosage: UNK
     Route: 048
     Dates: end: 20160827
  2. BONALON [Concomitant]
     Active Substance: ALENDRONATE SODIUM
     Dosage: UNK
     Dates: end: 20160827

REACTIONS (12)
  - Arthralgia [Recovering/Resolving]
  - Chest pain [Recovering/Resolving]
  - Pathological fracture [Unknown]
  - Hypophosphataemia [Recovering/Resolving]
  - Fanconi syndrome acquired [Recovering/Resolving]
  - Osteomalacia [Recovering/Resolving]
  - Bone metabolism disorder [Recovering/Resolving]
  - Nephrolithiasis [Unknown]
  - Renal impairment [Recovering/Resolving]
  - Gait disturbance [Recovering/Resolving]
  - Abdominal pain upper [Recovering/Resolving]
  - Pain in extremity [Recovering/Resolving]

NARRATIVE: CASE EVENT DATE: 20160411
